FAERS Safety Report 9216873 (Version 2)
Quarter: 2013Q2

REPORT INFORMATION
  Report Type: Spontaneous
  Country: US (occurrence: US)
  Receive Date: 20130408
  Receipt Date: 20130415
  Transmission Date: 20140414
  Serious: Yes (Other)
  Sender: FDA-Public Use
  Company Number: US-PFIZER INC-2013108456

PATIENT
  Sex: Male
  Weight: 86.17 kg

DRUGS (5)
  1. PROTONIX [Suspect]
     Dosage: UNK
  2. GEODON [Suspect]
     Indication: NERVOUSNESS
     Dosage: UNK
     Route: 030
     Dates: start: 20120603, end: 201207
  3. GEODON [Suspect]
     Indication: NERVOUSNESS
     Dosage: UNK
     Route: 048
     Dates: start: 201206, end: 201207
  4. ACCUTANE [Suspect]
     Dosage: UNK
  5. DIAZEPAM [Concomitant]
     Dosage: 5 MG, 2X/DAY

REACTIONS (5)
  - Diabetes mellitus [Unknown]
  - Feeling abnormal [Unknown]
  - Crying [Unknown]
  - Diabetic neuropathy [Unknown]
  - Nervous system disorder [Unknown]
